FAERS Safety Report 12014720 (Version 1)
Quarter: 2016Q1

REPORT INFORMATION
  Report Type: Spontaneous
  Country: US (occurrence: US)
  Receive Date: 20160205
  Receipt Date: 20160205
  Transmission Date: 20160526
  Serious: No
  Sender: FDA-Public Use
  Company Number: US-AMGEN-USASP2015013916

PATIENT

DRUGS (9)
  1. TAXOTERE [Concomitant]
     Active Substance: DOCETAXEL
     Indication: BREAST CANCER STAGE III
     Dosage: UNK
     Dates: start: 20140716
  2. PERJETA [Concomitant]
     Active Substance: PERTUZUMAB
     Indication: BREAST CANCER STAGE III
     Dosage: UNK
     Dates: start: 20140716
  3. CARAFATE [Concomitant]
     Active Substance: SUCRALFATE
     Dosage: UNK
  4. ADVIL [Concomitant]
     Active Substance: IBUPROFEN
     Indication: BONE PAIN
     Dosage: UNK
  5. HERCEPTIN [Concomitant]
     Active Substance: TRASTUZUMAB
     Indication: BREAST CANCER STAGE III
     Dosage: UNK
     Dates: start: 20140716
  6. NEULASTA [Suspect]
     Active Substance: PEGFILGRASTIM
     Indication: PRODUCT USED FOR UNKNOWN INDICATION
     Dosage: UNK
     Route: 065
  7. PROTONIX                           /00661201/ [Concomitant]
     Active Substance: OMEPRAZOLE
     Indication: DYSPEPSIA
     Dosage: UNK
  8. CLARITIN [Concomitant]
     Active Substance: LORATADINE
     Indication: BONE PAIN
     Dosage: UNK
  9. CARBOPLATIN. [Concomitant]
     Active Substance: CARBOPLATIN
     Indication: BREAST CANCER STAGE III
     Dosage: UNK
     Dates: start: 20140716

REACTIONS (2)
  - Bone pain [Unknown]
  - Pain [Not Recovered/Not Resolved]
